FAERS Safety Report 9129343 (Version 1)
Quarter: 2013Q1

REPORT INFORMATION
  Report Type: Spontaneous
  Country: US (occurrence: US)
  Receive Date: 20130228
  Receipt Date: 20130228
  Transmission Date: 20140127
  Serious: Yes (Other)
  Sender: FDA-Public Use
  Company Number: US-PFIZER INC-2013070117

PATIENT
  Age: 76 Year
  Sex: Female
  Weight: 72.6 kg

DRUGS (1)
  1. FIBERCON [Suspect]
     Indication: CONSTIPATION
     Dosage: UNK
     Dates: start: 20130222

REACTIONS (2)
  - Haemorrhage [Unknown]
  - Muscle spasms [Unknown]
